FAERS Safety Report 7248635-5 (Version None)
Quarter: 2011Q1

REPORT INFORMATION
  Report Type: 
  Country: None (occurrence: None)
  Receive Date: 20110128
  Receipt Date: 20101221
  Transmission Date: 20110831
  Serious: Yes (Hospitalization, Disabling)
  Sender: FDA-Public Use
  Company Number: CH-BAYER-2010-006136

PATIENT
  Age: 23 Year
  Sex: Female
  Weight: 90 kg

DRUGS (7)
  1. IBUPROFEN [Suspect]
     Dosage: UNK
     Route: 048
     Dates: start: 20101007, end: 20101019
  2. FLAGYL [Concomitant]
     Indication: COLITIS ULCERATIVE
     Dosage: UNK
     Route: 048
     Dates: start: 20100927, end: 20101011
  3. PENTASET [Suspect]
     Indication: COLITIS ULCERATIVE
     Dosage: UNK
     Route: 048
     Dates: start: 20100927, end: 20101011
  4. PRIMPERAN TAB [Concomitant]
     Dosage: UNK
     Route: 048
     Dates: start: 20101011, end: 20101019
  5. PREDNISONE [Suspect]
     Indication: COLITIS ULCERATIVE
     Dosage: DAILY DOSE -1 MG
     Dates: start: 20100927
  6. PURINETHOL [Suspect]
     Indication: COLITIS ULCERATIVE
     Dosage: DAILY DOSE -1 MG
     Route: 048
     Dates: start: 20090301, end: 20101011
  7. ASPIRIN [Suspect]
     Indication: HEADACHE
     Dosage: DAILY DOSE 4000 MG
     Route: 048
     Dates: end: 20101018

REACTIONS (6)
  - LEUKOPENIA [None]
  - TINNITUS [None]
  - OPTIC ISCHAEMIC NEUROPATHY [None]
  - INTRACRANIAL PRESSURE INCREASED [None]
  - HEPATIC ENZYME INCREASED [None]
  - ANAEMIA [None]
